FAERS Safety Report 9680658 (Version 1)
Quarter: 2013Q4

REPORT INFORMATION
  Report Type: Spontaneous
  Country: US (occurrence: US)
  Receive Date: 20131111
  Receipt Date: 20131111
  Transmission Date: 20140711
  Serious: No
  Sender: FDA-Public Use
  Company Number: US-009507513-1311USA001228

PATIENT
  Sex: 0

DRUGS (2)
  1. ZOSTAVAX [Suspect]
     Indication: PROPHYLAXIS
  2. STERILE DILUENT [Suspect]

REACTIONS (3)
  - Drug dose omission [Unknown]
  - Product packaging quantity issue [Unknown]
  - No adverse event [Unknown]
